FAERS Safety Report 22219166 (Version 1)
Quarter: 2023Q2

REPORT INFORMATION
  Report Type: Spontaneous
  Country: IT (occurrence: IT)
  Receive Date: 20230417
  Receipt Date: 20230417
  Transmission Date: 20230721
  Serious: Yes (Other)
  Sender: FDA-Public Use
  Company Number: IT-SEBELA IRELAND LIMITED-2023SEB00024

PATIENT
  Age: 77 Year
  Sex: Male

DRUGS (3)
  1. AZATHIOPRINE [Suspect]
     Active Substance: AZATHIOPRINE
     Indication: Myositis
  2. PREDNISONE [Concomitant]
     Active Substance: PREDNISONE
     Indication: Myositis
     Dosage: 1 MG/KG
  3. PREDNISONE [Concomitant]
     Active Substance: PREDNISONE
     Dosage: TAPERED

REACTIONS (1)
  - Kaposi^s sarcoma [Unknown]
